FAERS Safety Report 8968017 (Version 1)
Quarter: 2012Q4

REPORT INFORMATION
  Report Type: Spontaneous
  Country: US (occurrence: None)
  Receive Date: 20121214
  Receipt Date: 20121214
  Transmission Date: 20130627
  Serious: Yes (Other)
  Sender: FDA-Public Use
  Company Number: None

PATIENT
  Age: 78 Year
  Sex: Female
  Weight: 63.5 kg

DRUGS (1)
  1. LEVETIRACETAM [Suspect]
     Indication: SEIZURES
     Dosage: 1 tablet 2 times daily mouth
     Route: 048

REACTIONS (1)
  - Petit mal epilepsy [None]
